FAERS Safety Report 6193027-3 (Version None)
Quarter: 2009Q2

REPORT INFORMATION
  Report Type: 
  Country: None (occurrence: None)
  Receive Date: 20090518
  Receipt Date: 20090512
  Transmission Date: 20091009
  Serious: Yes (Life-Threatening, Hospitalization, Other)
  Sender: FDA-Public Use
  Company Number: US-ELI_LILLY_AND_COMPANY-US200905002566

PATIENT
  Age: 47 Year
  Sex: Female

DRUGS (6)
  1. GEMCITABINE HCL [Suspect]
     Indication: PANCREATIC CARCINOMA METASTATIC
     Dosage: 1000 MG/M2, WEEKLY FOR 2 WEEKS, OFF FOR 1 WEEK
     Route: 042
     Dates: start: 20060901, end: 20070601
  2. CAPECITABINE [Concomitant]
     Indication: PANCREATIC CARCINOMA METASTATIC
     Dosage: 825 MG/M2, TWICE WEEKLY FOR 2 WEEKS, OFF FOR 1 WEEK
     Dates: start: 20060901, end: 20070101
  3. CAPECITABINE [Concomitant]
     Dosage: 750 MG/M2, TWICE DAILY FOR 2 WEEKS, OFF FOR 1 WEEK
     Dates: end: 20070601
  4. BEVACIZUMAB [Concomitant]
     Indication: PANCREATIC CARCINOMA METASTATIC
     Dosage: 15 MG/M2, EVERY 3 WEEKS
     Dates: start: 20060901, end: 20070101
  5. VINCRISTINE SULFATE [Concomitant]
     Indication: HAEMOLYTIC URAEMIC SYNDROME
     Dosage: 2 MG
     Dates: start: 20070101
  6. RITUXIMAB [Concomitant]
     Indication: HAEMOLYTIC URAEMIC SYNDROME
     Dosage: 375 MG/M2, UNK
     Dates: start: 20070101

REACTIONS (7)
  - DYSPNOEA [None]
  - GRAND MAL CONVULSION [None]
  - HAEMOLYTIC URAEMIC SYNDROME [None]
  - HYPERTENSIVE EMERGENCY [None]
  - MUCOSAL INFLAMMATION [None]
  - NEUTROPENIA [None]
  - OEDEMA PERIPHERAL [None]
